FAERS Safety Report 20207153 (Version 2)
Quarter: 2022Q2

REPORT INFORMATION
  Report Type: Spontaneous
  Country: PT (occurrence: PT)
  Receive Date: 20211220
  Receipt Date: 20220525
  Transmission Date: 20220721
  Serious: Yes (Hospitalization, Other)
  Sender: FDA-Public Use
  Company Number: PT-AMGEN-PRTSP2021167315

PATIENT
  Age: 35 Year
  Sex: Female

DRUGS (2)
  1. ADALIMUMAB [Suspect]
     Active Substance: ADALIMUMAB
     Indication: Crohn^s disease
     Dosage: STARTED 1 YEAR BEFORE THE BEGINNING OF THERAPY
     Route: 058
  2. AZATHIOPRINE [Suspect]
     Active Substance: AZATHIOPRINE
     Indication: Crohn^s disease
     Dosage: STARTED 1 YEAR BEFORE THE BEGINNING OF THERAPY
     Route: 065

REACTIONS (1)
  - Systemic lupus erythematosus [Recovered/Resolved]
